FAERS Safety Report 7125282-7 (Version None)
Quarter: 2010Q4

REPORT INFORMATION
  Report Type: 
  Country: None (occurrence: None)
  Receive Date: 20101112
  Receipt Date: 20101102
  Transmission Date: 20110411
  Serious: Yes (Life-Threatening, Hospitalization)
  Sender: FDA-Public Use
  Company Number: 10-460

PATIENT
  Age: 63 Year
  Sex: Female

DRUGS (3)
  1. IBUPROFEN [Suspect]
     Indication: PERIARTHRITIS
     Dosage: 400 MG, 3X DAILY, ORAL
     Route: 048
     Dates: start: 20040429, end: 20040512
  2. ATENOLOL [Concomitant]
  3. BENDROFLUAZIDE [Concomitant]

REACTIONS (2)
  - DUODENAL ULCER HAEMORRHAGE [None]
  - GASTRIC ULCER [None]
